FAERS Safety Report 4799753-2 (Version None)
Quarter: 2005Q4

REPORT INFORMATION
  Report Type: 
  Country: None (occurrence: None)
  Receive Date: 20051011
  Receipt Date: 20051011
  Transmission Date: 20060501
  Serious: Yes (Hospitalization)
  Sender: FDA-Public Use
  Company Number: None

PATIENT
  Sex: Female
  Weight: 73.0291 kg

DRUGS (8)
  1. XELODA [Suspect]
     Indication: NEOPLASM MALIGNANT
     Dosage: (THERAPY DATES:  PRIOR TO ADMISSION)
  2. PRILOSEC [Concomitant]
  3. LOTREL [Concomitant]
  4. ZIAC [Concomitant]
  5. BUSPAR [Concomitant]
  6. PLAVIX [Concomitant]
  7. DARVOCET [Concomitant]
  8. XANAX [Concomitant]

REACTIONS (6)
  - ABDOMINAL PAIN [None]
  - ASTHENIA [None]
  - DIARRHOEA [None]
  - NAUSEA [None]
  - ORAL INTAKE REDUCED [None]
  - VOMITING [None]
